FAERS Safety Report 8737971 (Version 2)
Quarter: 2013Q4

REPORT INFORMATION
  Report Type: Spontaneous
  Country: FR (occurrence: FR)
  Receive Date: 20120823
  Receipt Date: 20131031
  Transmission Date: 20140711
  Serious: Yes (Hospitalization)
  Sender: FDA-Public Use
  Company Number: FR-009507513-1208FRA006699

PATIENT
  Age: 88 Year
  Sex: 0

DRUGS (5)
  1. INVANZ [Suspect]
     Indication: URINARY TRACT INFECTION
     Dosage: 1 G, QD
     Route: 042
     Dates: start: 20120703, end: 20120710
  2. DIFFU-K [Suspect]
     Indication: HYPOKALAEMIA
     Dosage: 600 MG, BID
     Route: 048
     Dates: start: 20120704, end: 20120712
  3. CALCIDOSE VITAMINE D [Concomitant]
     Dosage: 2 DF, QD
     Route: 048
     Dates: start: 20120626
  4. LASILIX [Concomitant]
     Dosage: 40 MG, QD
     Route: 048
     Dates: start: 20120626
  5. ACETAMINOPHEN [Concomitant]
     Dosage: 1 G, TID
     Dates: start: 20120628

REACTIONS (2)
  - Rash macular [Recovered/Resolved]
  - Palatal oedema [Recovered/Resolved]
